FAERS Safety Report 13903722 (Version 4)
Quarter: 2017Q4

REPORT INFORMATION
  Report Type: Spontaneous
  Country: US (occurrence: US)
  Receive Date: 20170824
  Receipt Date: 20171108
  Transmission Date: 20180320
  Serious: Yes (Hospitalization, Other)
  Sender: FDA-Public Use
  Company Number: US-ACTELION-A-NJ2017-158416

PATIENT
  Age: 44 Year
  Sex: Female
  Weight: 38.95 kg

DRUGS (3)
  1. VANCOMYCIN [Suspect]
     Active Substance: VANCOMYCIN
     Indication: CORYNEBACTERIUM INFECTION
     Route: 065
  2. REMODULIN [Concomitant]
     Active Substance: TREPROSTINIL
     Route: 042
  3. OPSUMIT [Suspect]
     Active Substance: MACITENTAN
     Indication: PULMONARY ARTERIAL HYPERTENSION
     Dosage: 10 MG, QD
     Route: 048

REACTIONS (34)
  - Nephropathy toxic [Recovering/Resolving]
  - Gastrointestinal haemorrhage [Unknown]
  - Bile duct obstruction [Unknown]
  - Biopsy liver [Unknown]
  - Pyrexia [Unknown]
  - Hypokalaemia [Unknown]
  - Splenomegaly [Unknown]
  - Post procedural complication [Unknown]
  - Streptococcus test positive [Unknown]
  - Pancytopenia [Unknown]
  - Abdominal pain [Unknown]
  - Nausea [Unknown]
  - Acute kidney injury [Unknown]
  - Haematochezia [Unknown]
  - Arteriovenous fistula [Unknown]
  - Hepatic embolisation [Unknown]
  - Liver function test increased [Unknown]
  - Transfusion [Unknown]
  - Weight decreased [Unknown]
  - Dyspnoea [Unknown]
  - Corynebacterium infection [Unknown]
  - Fatigue [Unknown]
  - Hepatomegaly [Unknown]
  - Hypotension [Unknown]
  - Blood creatinine increased [Recovering/Resolving]
  - Rectal haemorrhage [Unknown]
  - Overdose [Recovering/Resolving]
  - Blood bilirubin increased [Unknown]
  - Haemoglobin decreased [Unknown]
  - Bacteraemia [Unknown]
  - Vomiting [Unknown]
  - Arterial injury [Unknown]
  - Septic shock [Unknown]
  - Chest pain [Unknown]

NARRATIVE: CASE EVENT DATE: 201708
